FAERS Safety Report 4530257-8 (Version None)
Quarter: 2004Q4

REPORT INFORMATION
  Report Type: 
  Country: None (occurrence: None)
  Receive Date: 20041215
  Receipt Date: 20041202
  Transmission Date: 20050328
  Serious: Yes (Hospitalization)
  Sender: FDA-Public Use
  Company Number: 2004104688

PATIENT
  Age: 82 Year
  Sex: Female

DRUGS (14)
  1. TIKOSYN [Suspect]
     Indication: ATRIAL FIBRILLATION
     Dosage: 250 MCG (125 MCG, 2 IN 1 D), ORAL
     Route: 048
     Dates: start: 20021001, end: 20040901
  2. WARFARIN (WARFARIN) [Concomitant]
  3. METOPROLOL SUCCINATE [Concomitant]
  4. LISINOPRIL [Concomitant]
  5. ATORVASTATIN (ATORVASTATIN) [Concomitant]
  6. FUROSEMIDE [Concomitant]
  7. METHIMAZOLE [Concomitant]
  8. DIGOXIN [Concomitant]
  9. AMLODIPINE BESYLATE [Concomitant]
  10. GLIPIZIDE [Concomitant]
  11. IRON (IRON) [Concomitant]
  12. CALCIUM (CALCIUM) [Concomitant]
  13. INSULIN GLARGINE (INSULIN GLARGINE) [Concomitant]
  14. MULTIVITAMINS (ASCORBIC ACID/ERGOCALCIFEROL/FOLIC ACID/NICOTINAMIDE/PA [Concomitant]

REACTIONS (1)
  - ARRHYTHMIA SUPRAVENTRICULAR [None]
